FAERS Safety Report 22073725 (Version 12)
Quarter: 2024Q1

REPORT INFORMATION
  Report Type: Spontaneous
  Country: US (occurrence: US)
  Receive Date: 20230308
  Receipt Date: 20240308
  Transmission Date: 20240409
  Serious: Yes (Other)
  Sender: FDA-Public Use
  Company Number: US-PFIZER INC-PV202300035249

PATIENT
  Age: 84 Year
  Sex: Male

DRUGS (5)
  1. IBRANCE [Suspect]
     Active Substance: PALBOCICLIB
     Indication: Breast cancer male
     Dosage: (ONCE DAY FOR 15 DAYS THEN TAKE 15 DAYS REST PERIOD)
     Route: 048
  2. IBRANCE [Suspect]
     Active Substance: PALBOCICLIB
     Dosage: (14 DAYS THEN TAKE 14 DAYS OFF)
     Route: 048
  3. IBRANCE [Suspect]
     Active Substance: PALBOCICLIB
     Dosage: 125 MG
     Dates: start: 20230222
  4. IBRANCE [Suspect]
     Active Substance: PALBOCICLIB
     Dosage: (FOR 14 DAYS OUT OF THE MONTH)
  5. IBRANCE [Suspect]
     Active Substance: PALBOCICLIB
     Dosage: 1 PO (PER ORAL) QD
     Route: 048

REACTIONS (6)
  - Chronic kidney disease [Unknown]
  - Abdominal pain upper [Unknown]
  - Eye disorder [Not Recovered/Not Resolved]
  - Emphysema [Not Recovered/Not Resolved]
  - Off label use [Unknown]
  - Product use issue [Unknown]
